FAERS Safety Report 10367090 (Version 3)
Quarter: 2014Q4

REPORT INFORMATION
  Report Type: Spontaneous
  Country: IT (occurrence: IT)
  Receive Date: 20140807
  Receipt Date: 20141201
  Transmission Date: 20150528
  Serious: Yes (Hospitalization)
  Sender: FDA-Public Use
  Company Number: IT-ROCHE-1446217

PATIENT
  Age: 73 Year
  Sex: Male

DRUGS (11)
  1. TORVAST [Concomitant]
     Active Substance: ATORVASTATIN
  2. RAMIPRIL. [Concomitant]
     Active Substance: RAMIPRIL
     Route: 048
  3. EN [Suspect]
     Active Substance: DELORAZEPAM
     Indication: PRODUCT USED FOR UNKNOWN INDICATION
     Dosage: AS REQUIRED
     Route: 030
     Dates: start: 20140101, end: 20140517
  4. CITALOPRAM [Concomitant]
     Active Substance: CITALOPRAM HYDROBROMIDE
  5. MIRTAZAPINE. [Concomitant]
     Active Substance: MIRTAZAPINE
  6. BENTELAN [Concomitant]
     Active Substance: BETAMETHASONE SODIUM PHOSPHATE
  7. AMLODIPINE BESYLATE. [Concomitant]
     Active Substance: AMLODIPINE BESYLATE
     Route: 048
  8. RIVOTRIL [Suspect]
     Active Substance: CLONAZEPAM
     Indication: PRODUCT USED FOR UNKNOWN INDICATION
     Dosage: (2.5 MG/ML)
     Route: 048
     Dates: start: 20140101, end: 20140517
  9. SEROQUEL [Concomitant]
     Active Substance: QUETIAPINE FUMARATE
  10. TAZOCIN [Concomitant]
     Active Substance: PIPERACILLIN SODIUM\TAZOBACTAM SODIUM
  11. DEPAKIN [Concomitant]
     Active Substance: VALPROATE SODIUM

REACTIONS (4)
  - Respiratory acidosis [Recovering/Resolving]
  - Toxicity to various agents [Recovering/Resolving]
  - Sopor [Recovering/Resolving]
  - Acute respiratory failure [Recovering/Resolving]

NARRATIVE: CASE EVENT DATE: 20140517
